FAERS Safety Report 4504266-9 (Version None)
Quarter: 2004Q4

REPORT INFORMATION
  Report Type: 
  Country: None (occurrence: None)
  Receive Date: 20041112
  Receipt Date: 20041104
  Transmission Date: 20050328
  Serious: Yes (Other)
  Sender: FDA-Public Use
  Company Number: US-JNJFOC-20041003217

PATIENT
  Age: 66 Year
  Sex: Female

DRUGS (5)
  1. ACETAMINOPHEN [Suspect]
     Indication: ARTHRITIS
     Dosage: 1300 MG 1 IN 1 DAY ORAL
     Route: 048
     Dates: start: 20041001, end: 20041001
  2. HYDROCHLOROTHIAZIDE [Concomitant]
  3. LISINOPRIL [Concomitant]
  4. HYOSCIAMINE (HYOSCIAMINE) [Concomitant]
  5. CELEBREX [Concomitant]

REACTIONS (1)
  - HYPERSENSITIVITY [None]
